FAERS Safety Report 18540394 (Version 1)
Quarter: 2020Q4

REPORT INFORMATION
  Report Type: Spontaneous
  Country: CN (occurrence: CN)
  Receive Date: 20201124
  Receipt Date: 20201124
  Transmission Date: 20210114
  Serious: Yes (Other)
  Sender: FDA-Public Use
  Company Number: CN-PFIZER INC-2020451718

PATIENT
  Age: 72 Year
  Sex: Female
  Weight: 64 kg

DRUGS (2)
  1. METHOTREXATE. [Suspect]
     Active Substance: METHOTREXATE
     Indication: INTRACRANIAL MASS
     Dosage: 4800 MG, 1X/DAY
     Route: 041
     Dates: start: 20201012, end: 20201012
  2. GLUCOSE [Concomitant]
     Active Substance: DEXTROSE
     Indication: INTRACRANIAL MASS
     Dosage: 300.000 ML, 1X/DAY
     Route: 041
     Dates: start: 20201012, end: 20201012

REACTIONS (5)
  - Mouth ulceration [Not Recovered/Not Resolved]
  - Swelling face [Not Recovered/Not Resolved]
  - Off label use [Unknown]
  - Oropharyngeal pain [Not Recovered/Not Resolved]
  - Eating disorder [Not Recovered/Not Resolved]

NARRATIVE: CASE EVENT DATE: 20201012
